FAERS Safety Report 8360961-5 (Version None)
Quarter: 2012Q1

REPORT INFORMATION
  Report Type: 
  Country: None (occurrence: None)
  Receive Date: 20120323
  Receipt Date: 20110216
  Transmission Date: 20120608
  Serious: Yes (Hospitalization)
  Sender: FDA-Public Use
  Company Number: 163-21880-11012393

PATIENT
  Age: 74 Year
  Sex: Female

DRUGS (6)
  1. HYDROCHLOROTHIAZIDE [Concomitant]
  2. ENALAPRIL MALEATE [Concomitant]
  3. NORVASC [Concomitant]
  4. ASPIRIN TAB [Concomitant]
  5. REVLIMID [Suspect]
     Indication: MULTIPLE MYELOMA
     Dosage: 25 MG, DAILY X 21 DAYS Q 28 DAYSE, PO
     Route: 048
     Dates: start: 20101213, end: 20110118
  6. REVLIMID [Suspect]
     Indication: MULTIPLE MYELOMA
     Dosage: 25 MG, DAILY X 21 DAYS Q 28 DAYSE, PO
     Route: 048
     Dates: start: 20110101

REACTIONS (3)
  - ABDOMINAL PAIN UPPER [None]
  - ENTEROCOLITIS INFECTIOUS [None]
  - BACK PAIN [None]
